FAERS Safety Report 18474110 (Version 1)
Quarter: 2020Q4

REPORT INFORMATION
  Report Type: Spontaneous
  Country: US (occurrence: US)
  Receive Date: 20201106
  Receipt Date: 20201106
  Transmission Date: 20210114
  Serious: Yes (Hospitalization)
  Sender: FDA-Public Use
  Company Number: None

PATIENT
  Age: 54 Year
  Sex: Male
  Weight: 97.6 kg

DRUGS (10)
  1. DOXEPIN 100 MG [Concomitant]
  2. EMPAGLIFLOZIN [Suspect]
     Active Substance: EMPAGLIFLOZIN
     Indication: TYPE 2 DIABETES MELLITUS
     Route: 048
     Dates: start: 20200826, end: 20201101
  3. LOSARTAN 100 MG [Concomitant]
     Active Substance: LOSARTAN
  4. ASPIRIN 81 MG [Concomitant]
     Active Substance: ASPIRIN
  5. METRONIDAZOLE 0.75% EXTERNAL CREAM [Concomitant]
  6. CLONAZEPAM 0.5 MG [Concomitant]
     Active Substance: CLONAZEPAM
  7. METFORMIN [Concomitant]
     Active Substance: METFORMIN HYDROCHLORIDE
  8. PANTOPRAZOLE 40 MG DR [Concomitant]
  9. OLANZAPINE 15 MG [Concomitant]
     Active Substance: OLANZAPINE
  10. METFORMIN [Suspect]
     Active Substance: METFORMIN HYDROCHLORIDE

REACTIONS (3)
  - Hypertensive urgency [None]
  - Euglycaemic diabetic ketoacidosis [None]
  - Pancreatitis acute [None]

NARRATIVE: CASE EVENT DATE: 20201101
